FAERS Safety Report 18251786 (Version 1)
Quarter: 2020Q3

REPORT INFORMATION
  Report Type: Report from Study
  Country: US (occurrence: US)
  Receive Date: 20200910
  Receipt Date: 20200910
  Transmission Date: 20201103
  Serious: Yes (Other)
  Sender: FDA-Public Use
  Company Number: US-TEVA-2020-US-1825816

PATIENT
  Age: 79 Year
  Sex: Female

DRUGS (13)
  1. GABAPENTIN. [Concomitant]
     Active Substance: GABAPENTIN
  2. GINKGO BILOBA [Concomitant]
     Active Substance: GINKGO
  3. VLIBRYD [Concomitant]
  4. BIOTIN [Concomitant]
     Active Substance: BIOTIN
  5. ESCITALOPRAM OXALATE. [Concomitant]
     Active Substance: ESCITALOPRAM OXALATE
  6. POTASSIUM CHLORIDE. [Concomitant]
     Active Substance: POTASSIUM CHLORIDE
  7. VITAMIN E [Concomitant]
     Active Substance: .ALPHA.-TOCOPHEROL
  8. PANTOPRAZOLE [Concomitant]
     Active Substance: PANTOPRAZOLE
  9. FUROSEMIDE. [Concomitant]
     Active Substance: FUROSEMIDE
  10. VITAMIN B12 [Concomitant]
     Active Substance: CYANOCOBALAMIN
  11. AUSTEDO [Suspect]
     Active Substance: DEUTETRABENAZINE
     Dosage: 27 MILLIGRAM DAILY;
     Route: 048
     Dates: start: 20180126
  12. CHONDROITIN?GLUCOSAMINE [Concomitant]
  13. LOSARTAN POTASSIUM. [Concomitant]
     Active Substance: LOSARTAN POTASSIUM

REACTIONS (13)
  - Dizziness postural [Unknown]
  - Walking aid user [None]
  - Drooling [Unknown]
  - Memory impairment [Unknown]
  - Tardive dyskinesia [Unknown]
  - Choking [Unknown]
  - Fall [Recovering/Resolving]
  - Dysgraphia [None]
  - Initial insomnia [Unknown]
  - Poor quality sleep [Unknown]
  - Gait disturbance [Recovering/Resolving]
  - Fatigue [Unknown]
  - Parkinsonism [Unknown]

NARRATIVE: CASE EVENT DATE: 202002
